FAERS Safety Report 21442154 (Version 1)
Quarter: 2022Q4

REPORT INFORMATION
  Report Type: Spontaneous
  Country: US (occurrence: US)
  Receive Date: 20221011
  Receipt Date: 20221011
  Transmission Date: 20230113
  Serious: No
  Sender: FDA-Public Use
  Company Number: US-Sprout Pharmaceuticals, Inc.-2021SP000370

PATIENT
  Age: 29 Year
  Sex: Female

DRUGS (2)
  1. ADDYI [Suspect]
     Active Substance: FLIBANSERIN
     Indication: Libido decreased
     Route: 048
     Dates: start: 202110, end: 202111
  2. LEXAPRO [Concomitant]
     Active Substance: ESCITALOPRAM OXALATE
     Indication: Anxiety

REACTIONS (2)
  - Dizziness [Recovered/Resolved]
  - Drug ineffective [Not Recovered/Not Resolved]

NARRATIVE: CASE EVENT DATE: 20210101
